FAERS Safety Report 8963247 (Version 5)
Quarter: 2013Q3

REPORT INFORMATION
  Report Type: Report from Study
  Country: FR (occurrence: FR)
  Receive Date: 20121214
  Receipt Date: 20130814
  Transmission Date: 20140515
  Serious: Yes (Hospitalization)
  Sender: FDA-Public Use
  Company Number: FR-PFIZER INC-2012307468

PATIENT
  Age: 56 Year
  Sex: Male

DRUGS (10)
  1. MYLOTARG [Suspect]
     Indication: ACUTE MYELOID LEUKAEMIA
     Dosage: 6 MG/M2 ON DAY 4
     Dates: start: 20080910
  2. MYLOTARG [Suspect]
     Dosage: 6 MG/M2 ON DAY 4
     Dates: start: 20081125
  3. CYTARABINE [Suspect]
     Indication: ACUTE MYELOID LEUKAEMIA
     Dosage: 200 MG/M2 DAILY FROM DAY 1 TO DAY 3
     Dates: start: 20080910
  4. CYTARABINE [Suspect]
     Dosage: 1 G/M2 TWICE DAILY, FROM DAY 1 TO DAY 7
     Dates: start: 20081015
  5. CYTARABINE [Suspect]
     Dosage: 1 G/M2 TWICE DAILY, FROM DAY 1 TO DAY 5
     Dates: start: 20081125
  6. CYTARABINE [Suspect]
     Dosage: 1 G/M2 TWICE DAILY, FROM DAY 1 TO DAY 5
  7. MITOXANTRONE [Suspect]
     Indication: ACUTE MYELOID LEUKAEMIA
     Dosage: 12 MG/M2 DAILY, ON DAY 1 AND DAY 2
     Dates: start: 20081125
  8. MITOXANTRONE [Suspect]
     Dosage: 12 MG/M2 DAILY, ON DAY 1 AND DAY 2
  9. DAUNORUBICIN [Suspect]
     Indication: ACUTE MYELOID LEUKAEMIA
     Dosage: 60 MG/M2 DAILY, FROM DAY 1 TO DAY 7
     Dates: start: 20080910
  10. DAUNORUBICIN [Suspect]
     Dosage: 60 MG/M2 DAILY, ON DAY 1 AND DAY 2
     Dates: start: 20081015

REACTIONS (1)
  - Neutropenic colitis [Recovered/Resolved with Sequelae]
